FAERS Safety Report 10062835 (Version 1)
Quarter: 2014Q1

REPORT INFORMATION
  Report Type: Spontaneous
  Country: US (occurrence: None)
  Receive Date: 20140328
  Receipt Date: 20140328
  Transmission Date: 20141002
  Serious: No
  Sender: FDA-Public Use
  Company Number: CABO-14003996

PATIENT
  Age: 51 Year
  Sex: Male

DRUGS (18)
  1. COMETRIQ [Suspect]
     Indication: PROSTATE CANCER
     Route: 048
     Dates: start: 20140131
  2. HYDROMORPHONE (HYDROMORPHONE) [Concomitant]
  3. LUPRON (LEUPRORELIN ACETATE) [Concomitant]
  4. IPRATROPIUM (IPRATROPIUM) [Concomitant]
  5. ALBUTEROL (SALBUTAMOL) [Concomitant]
  6. XGEVA (DENOSUMAB) [Concomitant]
  7. MIRALAX (MACROGOL) [Concomitant]
  8. DOCUSATE (DOCUSATE) [Concomitant]
  9. FLOMAX (MORNIFLUMATE) [Concomitant]
  10. LUTEIN (XANTOFYL) [Concomitant]
  11. MAG-OXIDE (MAGNESIUM OXIDE) [Concomitant]
  12. SOMA (CARISOPRODOL) [Concomitant]
  13. ZOFRAN (ONDANSETRON) [Concomitant]
  14. ZANTAC (RANITDINE HYDROCHLORIDE) [Concomitant]
  15. ZOCOR (SIMVASTATIN) [Concomitant]
  16. LIDODERM (LIDOCAINE) [Concomitant]
  17. ROBITUSSIN (GUAIFENESIN) [Concomitant]
  18. NEXIUM (ESOMEPRAZOLE MAGNESIUM) [Concomitant]

REACTIONS (5)
  - Micturition urgency [None]
  - Local swelling [None]
  - Oedema peripheral [None]
  - Dyspepsia [None]
  - Off label use [None]
